FAERS Safety Report 5773055-X (Version None)
Quarter: 2008Q2

REPORT INFORMATION
  Report Type: 
  Country: None (occurrence: None)
  Receive Date: 20080611
  Receipt Date: 20080523
  Transmission Date: 20081010
  Serious: Yes (Death)
  Sender: FDA-Public Use
  Company Number: 080507976

PATIENT
  Age: 45 Year
  Sex: Male

DRUGS (5)
  1. AMBIEN [Suspect]
     Indication: INITIAL INSOMNIA
     Dosage: 10MG, Q.H.S., ORAL
     Route: 048
     Dates: start: 20040714
  2. MUCINEX [Suspect]
     Indication: UPPER RESPIRATORY TRACT INFECTION
  3. BUPROPION HYDROCHLORIDE [Concomitant]
  4. DEXTROAMPHETAMINE SULFATE [Concomitant]
  5. UNKNOWN (ZALEPLON (SONATA)) [Concomitant]

REACTIONS (2)
  - DRUG LEVEL INCREASED [None]
  - UPPER RESPIRATORY TRACT INFECTION [None]
